FAERS Safety Report 21353295 (Version 1)
Quarter: 2022Q3

REPORT INFORMATION
  Report Type: Spontaneous
  Country: US (occurrence: US)
  Receive Date: 20220920
  Receipt Date: 20220920
  Transmission Date: 20221027
  Serious: No
  Sender: FDA-Public Use
  Company Number: US-drreddys-SPO/USA/22/0154464

PATIENT
  Age: 14 Year
  Sex: Female
  Weight: 52 kg

DRUGS (6)
  1. TACROLIMUS [Interacting]
     Active Substance: TACROLIMUS
     Indication: Immunosuppressant drug therapy
     Dosage: REDUCED
  2. TACROLIMUS [Interacting]
     Active Substance: TACROLIMUS
     Route: 048
  3. RITONAVIR [Interacting]
     Active Substance: RITONAVIR
     Indication: COVID-19
     Dosage: TWICE DAILY OF WHICH SHE TOOK TWO DOSES
     Route: 048
  4. NIRMATRELVIR [Interacting]
     Active Substance: NIRMATRELVIR
     Indication: COVID-19
     Dosage: TWICE DAILY OF WHICH TOOK TWO DOSES
     Route: 048
  5. BEBTELOVIMAB [Concomitant]
     Active Substance: BEBTELOVIMAB
     Indication: COVID-19
  6. PREDNISONE [Concomitant]
     Active Substance: PREDNISONE
     Indication: Immunosuppressant drug therapy
     Route: 048

REACTIONS (3)
  - Immunosuppressant drug level increased [Recovered/Resolved]
  - Blood creatinine increased [Recovered/Resolved]
  - Drug interaction [Recovered/Resolved]
